FAERS Safety Report 15764596 (Version 3)
Quarter: 2023Q2

REPORT INFORMATION
  Report Type: Report from Study
  Country: US (occurrence: US)
  Receive Date: 20181227
  Receipt Date: 20230626
  Transmission Date: 20230721
  Serious: Yes (Hospitalization, Other)
  Sender: FDA-Public Use
  Company Number: US-MERCK KGAA-7084355

PATIENT
  Age: 53 Year
  Sex: Female

DRUGS (1)
  1. REBIF [Suspect]
     Active Substance: INTERFERON BETA-1A
     Indication: Multiple sclerosis
     Route: 058
     Dates: start: 20050325

REACTIONS (9)
  - Ankle operation [Unknown]
  - Fall [Unknown]
  - Arthritis bacterial [Unknown]
  - Lymph gland infection [Recovered/Resolved]
  - Joint injury [Unknown]
  - Decreased immune responsiveness [Unknown]
  - Cartilage injury [Recovered/Resolved]
  - Incision site cellulitis [Not Recovered/Not Resolved]
  - Scar [Not Recovered/Not Resolved]

NARRATIVE: CASE EVENT DATE: 20080101
